FAERS Safety Report 6160645-8 (Version None)
Quarter: 2009Q2

REPORT INFORMATION
  Report Type: 
  Country: None (occurrence: None)
  Receive Date: 20090420
  Receipt Date: 20090409
  Transmission Date: 20091009
  Serious: Yes (Other)
  Sender: FDA-Public Use
  Company Number: FR-PFIZER INC-2007030118

PATIENT

DRUGS (1)
  1. CHAMPIX [Suspect]
     Indication: EX-TOBACCO USER
     Dosage: 1 MG, 2X/DAY
     Dates: start: 20070214, end: 20070324

REACTIONS (5)
  - EYE BURNS [None]
  - FUNGAL INFECTION [None]
  - GENITAL INFECTION FUNGAL [None]
  - LACRIMATION INCREASED [None]
  - OEDEMA [None]
